FAERS Safety Report 10982727 (Version 1)
Quarter: 2015Q2

REPORT INFORMATION
  Report Type: Spontaneous
  Country: US (occurrence: None)
  Receive Date: 20150402
  Receipt Date: 20150402
  Transmission Date: 20150821
  Serious: No
  Sender: FDA-Public Use
  Company Number: None

PATIENT
  Age: 52 Year
  Sex: Male
  Weight: 77.11 kg

DRUGS (6)
  1. VITAMIN C [Concomitant]
     Active Substance: ASCORBIC ACID
  2. ATORVASTATINE [Concomitant]
     Active Substance: ATORVASTATIN
  3. MULTIVITAMIN [Concomitant]
     Active Substance: VITAMINS
  4. PLAVIX [Suspect]
     Active Substance: CLOPIDOGREL BISULFATE
     Indication: ANGIOPLASTY
     Route: 048
     Dates: start: 20150311, end: 20150328
  5. FISH OIL [Suspect]
     Active Substance: FISH OIL
  6. RANEXA [Suspect]
     Active Substance: RANOLAZINE
     Indication: ANGIOPLASTY
     Dosage: 500 MG, 1 PILL TWICE DAILY, TAKEN BY MOUTH
     Route: 048
     Dates: start: 20150311, end: 20150326

REACTIONS (4)
  - Rash generalised [None]
  - Pruritus [None]
  - Arthralgia [None]
  - Urticaria [None]

NARRATIVE: CASE EVENT DATE: 20150327
